FAERS Safety Report 21789124 (Version 2)
Quarter: 2023Q1

REPORT INFORMATION
  Report Type: Spontaneous
  Country: FR (occurrence: FR)
  Receive Date: 20221228
  Receipt Date: 20230112
  Transmission Date: 20230418
  Serious: Yes (Life-Threatening)
  Sender: FDA-Public Use
  Company Number: None

PATIENT
  Age: 46 Year
  Sex: Female
  Weight: 62 kg

DRUGS (1)
  1. IFOSFAMIDE [Suspect]
     Active Substance: IFOSFAMIDE
     Indication: B-cell lymphoma stage IV
     Dosage: 6 G
     Route: 042
     Dates: start: 20221129

REACTIONS (3)
  - Accidental overdose [Recovered/Resolved]
  - Wrong rate [Recovered/Resolved]
  - Headache [Recovered/Resolved]

NARRATIVE: CASE EVENT DATE: 20221129
